FAERS Safety Report 16363200 (Version 1)
Quarter: 2019Q3

REPORT INFORMATION
  Report Type: Spontaneous
  Country: US (occurrence: US)
  Receive Date: 20190527
  Receipt Date: 20190527
  Transmission Date: 20191004
  Serious: No
  Sender: FDA-Public Use
  Company Number: None

PATIENT
  Age: 54 Year
  Sex: Female
  Weight: 72 kg

DRUGS (5)
  1. QVAR REDIHALER [Suspect]
     Active Substance: BECLOMETHASONE DIPROPIONATE
     Indication: ASTHMA
     Dosage: ?          QUANTITY:3 INHALATION(S);?
     Route: 055
     Dates: start: 20190512, end: 20190527
  2. MULTI VITAMIN [Concomitant]
     Active Substance: VITAMINS
  3. DIVAN [Concomitant]
  4. ASPIRIN. [Concomitant]
     Active Substance: ASPIRIN
  5. PROBIOTICS [Concomitant]
     Active Substance: PROBIOTICS NOS

REACTIONS (5)
  - Product formulation issue [None]
  - Dyspnoea [None]
  - Rales [None]
  - Drug ineffective [None]
  - Device issue [None]

NARRATIVE: CASE EVENT DATE: 20190526
